FAERS Safety Report 9889437 (Version 3)
Quarter: 2014Q1

REPORT INFORMATION
  Report Type: Spontaneous
  Country: BR (occurrence: BR)
  Receive Date: 20140211
  Receipt Date: 20140314
  Transmission Date: 20141002
  Serious: Yes (Hospitalization, Other)
  Sender: FDA-Public Use
  Company Number: BR-ASTRAZENECA-2014SE08195

PATIENT
  Age: 63 Year
  Sex: Female
  Weight: 70 kg

DRUGS (7)
  1. ATACAND HCT [Suspect]
     Indication: HYPERTENSION
     Dosage: 16/12.5 MG DAILY
     Route: 048
     Dates: start: 2009
  2. SELOZOK [Suspect]
     Route: 048
     Dates: start: 201312, end: 201401
  3. SELOZOK [Suspect]
     Route: 048
     Dates: start: 201401
  4. OMEPRAZOLE [Suspect]
     Dosage: DAILY
     Route: 048
     Dates: start: 201312
  5. TREZOR [Suspect]
     Route: 048
     Dates: start: 201312
  6. SOMALGIN CARDIO [Concomitant]
     Route: 048
     Dates: start: 201312
  7. CLOPIDOGREL BISULFATE [Concomitant]
     Route: 048
     Dates: start: 201312

REACTIONS (4)
  - Coronary artery occlusion [Recovered/Resolved]
  - Drug ineffective [Unknown]
  - Hypertension [Recovering/Resolving]
  - Hypotension [Recovered/Resolved]
